FAERS Safety Report 5336793-9 (Version None)
Quarter: 2007Q2

REPORT INFORMATION
  Report Type: 
  Country: None (occurrence: None)
  Receive Date: 20070529
  Receipt Date: 20070517
  Transmission Date: 20071010
  Serious: Yes (Other)
  Sender: FDA-Public Use
  Company Number: PHFR2006GB03660

PATIENT
  Age: 78 Year
  Sex: Male
  Weight: 73 kg

DRUGS (8)
  1. ZOLEDRONATE [Suspect]
     Indication: MULTIPLE MYELOMA
     Dosage: 4MG EVERY 3-4 WEEKS
     Route: 042
     Dates: start: 20050223, end: 20060328
  2. CLODRONATE DISODIUM [Concomitant]
     Route: 048
     Dates: start: 20060829
  3. THALIDOMIDE [Concomitant]
     Dates: start: 20051125, end: 20060801
  4. CYCLOPHOSPHAMIDE [Concomitant]
     Dates: start: 20051125, end: 20060801
  5. DEXAMETHASONE [Concomitant]
     Dates: start: 20051125, end: 20060801
  6. MELPHALAN [Concomitant]
  7. PREDNISOLONE [Concomitant]
  8. DARBEPOETIN ALFA [Concomitant]

REACTIONS (11)
  - ABSCESS JAW [None]
  - ABSCESS RUPTURE [None]
  - BLOOD CREATINE INCREASED [None]
  - BONE DEBRIDEMENT [None]
  - ERYTHEMA [None]
  - LYMPHADENOPATHY [None]
  - OSTEOMYELITIS [None]
  - OSTEONECROSIS [None]
  - RENAL FAILURE [None]
  - SWELLING [None]
  - TOOTH EXTRACTION [None]
